FAERS Safety Report 9868864 (Version 1)
Quarter: 2014Q1

REPORT INFORMATION
  Report Type: Spontaneous
  Country: US (occurrence: US)
  Receive Date: 20140204
  Receipt Date: 20140204
  Transmission Date: 20141002
  Serious: No
  Sender: FDA-Public Use
  Company Number: US-ENDO PHARMACEUTICALS INC.-GLIM20130005

PATIENT
  Age: 49 Year
  Sex: Female

DRUGS (1)
  1. GLIMEPIRIDE TABLETS 2MG [Suspect]
     Indication: DIABETES MELLITUS
     Route: 048
     Dates: start: 20131007

REACTIONS (1)
  - Drug ineffective [Not Recovered/Not Resolved]
